FAERS Safety Report 10799105 (Version 1)
Quarter: 2015Q1

REPORT INFORMATION
  Report Type: Spontaneous
  Country: None (occurrence: US)
  Receive Date: 20150216
  Receipt Date: 20150216
  Transmission Date: 20150721
  Serious: No
  Sender: FDA-Public Use
  Company Number: US-ALLERGAN-1403395US

PATIENT
  Age: 65 Year
  Sex: Male

DRUGS (4)
  1. GLAUCOMA EYE DROPS [Concomitant]
     Indication: GLAUCOMA
  2. PILLS FOR ENLARGED PROSTATE [Concomitant]
     Indication: PROSTATOMEGALY
  3. RESTASIS [Suspect]
     Active Substance: CYCLOSPORINE
     Dosage: 4 GTT, BID
     Route: 047
     Dates: start: 201402
  4. RESTASIS [Suspect]
     Active Substance: CYCLOSPORINE
     Indication: DRY EYE
     Dosage: 2 GTT, BID
     Route: 047
     Dates: start: 201402

REACTIONS (1)
  - Visual acuity reduced [Not Recovered/Not Resolved]
